FAERS Safety Report 24375691 (Version 1)
Quarter: 2024Q3

REPORT INFORMATION
  Report Type: Spontaneous
  Country: CA (occurrence: CA)
  Receive Date: 20240928
  Receipt Date: 20240928
  Transmission Date: 20241016
  Serious: Yes (Hospitalization)
  Sender: CELLTRION
  Company Number: CA-CELLTRION INC.-2021CA019468

PATIENT

DRUGS (2)
  1. TRUXIMA [Suspect]
     Active Substance: RITUXIMAB-ABBS
     Indication: Rheumatoid vasculitis
     Dosage: 1000 MG, DAY1 AND 15
     Route: 042
     Dates: start: 20210608
  2. TRUXIMA [Suspect]
     Active Substance: RITUXIMAB-ABBS
     Indication: Rheumatoid arthritis
     Dosage: 1000 MG, INF#12
     Route: 042
     Dates: start: 20210608

REACTIONS (6)
  - Hospitalisation [Recovered/Resolved]
  - Pleural effusion [Unknown]
  - Dyspnoea [Recovering/Resolving]
  - Haemorrhage [Unknown]
  - Off label use [Unknown]
  - Treatment delayed [Unknown]

NARRATIVE: CASE EVENT DATE: 20240901
